FAERS Safety Report 8793681 (Version 2)
Quarter: 2012Q4

REPORT INFORMATION
  Report Type: 
  Country: US (occurrence: US)
  Receive Date: 20120918
  Receipt Date: 20121116
  Transmission Date: 20130627
  Serious: Yes (Death)
  Sender: FDA-Public Use
  Company Number: US-CELGENEUS-163-21880-12091405

PATIENT
  Age: 85 Year
  Sex: Female

DRUGS (6)
  1. REVLIMID [Suspect]
     Indication: MYELODYSPLASTIC SYNDROME
     Dosage: 5 Milligram
     Route: 048
     Dates: start: 20120712, end: 20120906
  2. AMBIEN [Concomitant]
     Indication: SLEEP DISORDER
     Dosage: 10 Milligram
     Route: 048
  3. ROXANOL [Concomitant]
     Indication: PAIN
     Dosage: 5 Milligram
     Route: 048
     Dates: start: 20120906
  4. XANAX [Concomitant]
     Indication: ANXIETY
     Dosage: 2 Milligram
     Route: 048
  5. OXYCONTIN [Concomitant]
     Indication: PAIN
     Dosage: 80 Milligram
     Route: 048
  6. PROTONIX [Concomitant]
     Indication: GERD
     Dosage: 40 Milligram
     Route: 048

REACTIONS (3)
  - Asthenia [Fatal]
  - Febrile neutropenia [Fatal]
  - Pneumonia [Fatal]
